FAERS Safety Report 24926751 (Version 1)
Quarter: 2025Q1

REPORT INFORMATION
  Report Type: Other
  Country: CA (occurrence: CA)
  Receive Date: 20250205
  Receipt Date: 20250205
  Transmission Date: 20250409
  Serious: Yes (Hospitalization)
  Sender: BIOCON
  Company Number: CA-BIOCON BIOLOGICS LIMITED-BBL2025000459

PATIENT

DRUGS (1)
  1. HULIO [Suspect]
     Active Substance: ADALIMUMAB-FKJP
     Indication: Crohn^s disease
     Dosage: 40 MILLIGRAM, 1 EVERY 2 WEEKS (SOLUTION)
     Route: 058

REACTIONS (3)
  - Crohn^s disease [Not Recovered/Not Resolved]
  - Bedridden [Not Recovered/Not Resolved]
  - Decreased appetite [Not Recovered/Not Resolved]
